FAERS Safety Report 9679487 (Version 1)
Quarter: 2013Q4

REPORT INFORMATION
  Report Type: Spontaneous
  Country: US (occurrence: US)
  Receive Date: 20131109
  Receipt Date: 20131109
  Transmission Date: 20140711
  Serious: No
  Sender: FDA-Public Use
  Company Number: US-SANOFI-AVENTIS-2013SA055309

PATIENT
  Age: 96 Year
  Sex: Male

DRUGS (1)
  1. ALLEGRA-D, 24 HR [Suspect]
     Indication: BRONCHITIS
     Dosage: 180/240 MG DAILY
     Route: 048
     Dates: start: 20130518, end: 20130528

REACTIONS (4)
  - Tremor [Unknown]
  - Gait disturbance [Unknown]
  - Asthenia [Unknown]
  - Insomnia [Unknown]
